FAERS Safety Report 6869825-7 (Version None)
Quarter: 2010Q3

REPORT INFORMATION
  Report Type: 
  Country: None (occurrence: None)
  Receive Date: 20100722
  Receipt Date: 20080830
  Transmission Date: 20110219
  Serious: No
  Sender: FDA-Public Use
  Company Number: US-PFIZER INC-2008074468

PATIENT
  Sex: Female
  Weight: 130 kg

DRUGS (11)
  1. CHANTIX [Suspect]
     Indication: SMOKING CESSATION THERAPY
     Dates: start: 20080701
  2. IMDUR [Concomitant]
     Indication: CARDIAC DISORDER
  3. AMIODARONE HCL [Concomitant]
  4. BENAZEPRIL HYDROCHLORIDE [Concomitant]
  5. PREDNISONE [Concomitant]
     Indication: DYSPNOEA
  6. GLYBURIDE [Concomitant]
     Indication: DIABETES MELLITUS
  7. PLAQUENIL [Concomitant]
     Indication: SYSTEMIC LUPUS ERYTHEMATOSUS
  8. NEXIUM [Concomitant]
     Indication: ABDOMINAL DISCOMFORT
  9. LASIX [Concomitant]
  10. POTASSIUM [Concomitant]
  11. NORVASC [Concomitant]

REACTIONS (5)
  - AGITATION [None]
  - CONFUSIONAL STATE [None]
  - DIARRHOEA [None]
  - NAUSEA [None]
  - WEIGHT DECREASED [None]
